FAERS Safety Report 4434673-4 (Version None)
Quarter: 2004Q3

REPORT INFORMATION
  Report Type: 
  Country: None (occurrence: None)
  Receive Date: 20040827
  Receipt Date: 20040820
  Transmission Date: 20050211
  Serious: Yes (Hospitalization)
  Sender: FDA-Public Use
  Company Number: FR-JNJFOC-20040605909

PATIENT
  Age: 36 Year
  Sex: Female
  Weight: 63 kg

DRUGS (5)
  1. REMICADE [Suspect]
     Indication: ANKYLOSING SPONDYLITIS
     Route: 042
  2. APRANAX [Concomitant]
  3. CORTANCYL [Concomitant]
  4. KALEORID LEO [Concomitant]
  5. INIPOMP [Concomitant]

REACTIONS (3)
  - ASTHENIA [None]
  - DYSAESTHESIA [None]
  - PARAESTHESIA [None]
